FAERS Safety Report 4870628-3 (Version None)
Quarter: 2005Q4

REPORT INFORMATION
  Report Type: 
  Country: None (occurrence: None)
  Receive Date: 20051228
  Receipt Date: 20051207
  Transmission Date: 20060501
  Serious: Yes (Death, Hospitalization)
  Sender: FDA-Public Use
  Company Number: US200512001468

PATIENT
  Age: 39 Year
  Sex: Male

DRUGS (2)
  1. ZYPREXA [Suspect]
     Indication: SCHIZOPHRENIA
  2. LITHIUM CARBONATE [Concomitant]

REACTIONS (2)
  - COMA [None]
  - HYPERGLYCAEMIA [None]
